FAERS Safety Report 6313938-5 (Version None)
Quarter: 2009Q3

REPORT INFORMATION
  Report Type: 
  Country: None (occurrence: None)
  Receive Date: 20090818
  Receipt Date: 20090812
  Transmission Date: 20100115
  Serious: Yes (Other)
  Sender: FDA-Public Use
  Company Number: NL-TEVA-205903ISR

PATIENT
  Sex: Female

DRUGS (1)
  1. COPAXONE [Suspect]
     Dates: start: 20071010

REACTIONS (2)
  - CEREBRAL INFARCTION [None]
  - SPEECH DISORDER [None]
